FAERS Safety Report 10653635 (Version 1)
Quarter: 2014Q4

REPORT INFORMATION
  Report Type: Spontaneous
  Country: FR (occurrence: FR)
  Receive Date: 20141216
  Receipt Date: 20141216
  Transmission Date: 20150529
  Serious: Yes (Hospitalization, Other)
  Sender: FDA-Public Use
  Company Number: FR-009507513-1412FRA006911

PATIENT
  Sex: Male

DRUGS (4)
  1. ZOPHREN (ONDANSETRON) [Suspect]
     Active Substance: ONDANSETRON
  2. ERBITUX [Suspect]
     Active Substance: CETUXIMAB
  3. CISPLATIN. [Suspect]
     Active Substance: CISPLATIN
  4. EMEND [Suspect]
     Active Substance: APREPITANT
     Dosage: UNKNOWN
     Route: 048

REACTIONS (1)
  - Coma [Unknown]
